FAERS Safety Report 8582200-2 (Version None)
Quarter: 2012Q3

REPORT INFORMATION
  Report Type: 
  Country: None (occurrence: None)
  Receive Date: 20120809
  Receipt Date: 20120731
  Transmission Date: 20120928
  Serious: Yes (Death)
  Sender: FDA-Public Use
  Company Number: CA-MILLENNIUM PHARMACEUTICALS, INC.-2012-05475

PATIENT

DRUGS (2)
  1. BEVACIZUMAB [Suspect]
     Indication: MULTIPLE MYELOMA
     Dosage: 15 MG/KG, CYCLIC
     Route: 042
  2. VELCADE [Suspect]
     Indication: MULTIPLE MYELOMA
     Dosage: 1.3 MG/M2, CYCLIC
     Route: 040

REACTIONS (1)
  - DEATH [None]
